FAERS Safety Report 23764115 (Version 1)
Quarter: 2024Q2

REPORT INFORMATION
  Report Type: Report from Study
  Country: NL (occurrence: NL)
  Receive Date: 20240419
  Receipt Date: 20240419
  Transmission Date: 20240716
  Serious: Yes (Death)
  Sender: FDA-Public Use
  Company Number: NL-ABBVIE-5672469

PATIENT
  Age: 80 Year
  Sex: Female

DRUGS (9)
  1. CARBIDOPA\LEVODOPA [Suspect]
     Active Substance: CARBIDOPA\LEVODOPA
     Indication: Parkinson^s disease
     Dosage: MD: 10.0ML, CD: 3.6ML.H, ED: 1.5ML, DURATION TEXT: REMAINS AT 16 HOURS
     Route: 050
     Dates: start: 20230921, end: 20231004
  2. CARBIDOPA\LEVODOPA [Suspect]
     Active Substance: CARBIDOPA\LEVODOPA
     Dosage: MD: 10.0ML, CD: 3.3ML.H, ED: 1.5ML, DURATION TEXT: REMAINS AT 16 HOURS
     Route: 050
     Dates: start: 20240219, end: 20240229
  3. CARBIDOPA\LEVODOPA [Suspect]
     Active Substance: CARBIDOPA\LEVODOPA
     Dosage: MD: 10.0ML, CD: 3.5ML.H, ED: 1.5ML, DURATION TEXT: REMAINS AT 16 HOURS
     Route: 050
     Dates: start: 20231004, end: 20231228
  4. CARBIDOPA\LEVODOPA [Suspect]
     Active Substance: CARBIDOPA\LEVODOPA
     Dosage: MD: 10.0ML, CD: 3.3ML.H, ED: 1.5ML?REMAINS AT 16 HOURS
     Route: 050
     Dates: start: 20240229, end: 20240305
  5. CARBIDOPA\LEVODOPA [Suspect]
     Active Substance: CARBIDOPA\LEVODOPA
     Route: 050
     Dates: start: 20180228
  6. CARBIDOPA\LEVODOPA [Suspect]
     Active Substance: CARBIDOPA\LEVODOPA
     Dosage: MD: 10.0ML, CD: 3.5ML.H, ED: 1.5ML, DURATION TEXT: REMAINS AT 16 HOURS
     Route: 050
     Dates: start: 20231228, end: 20240219
  7. CARBIDOPA\LEVODOPA [Suspect]
     Active Substance: CARBIDOPA\LEVODOPA
     Dosage: MD: 10.0ML, CD: 3.3ML.H, ED: 1.5ML?REMAINS AT 16 HOURS
     Route: 050
     Dates: start: 20240305, end: 20240415
  8. LEVODOPA [Concomitant]
     Active Substance: LEVODOPA
     Indication: Parkinson^s disease
     Route: 065
  9. ACETAMINOPHEN [Concomitant]
     Active Substance: ACETAMINOPHEN
     Indication: Product used for unknown indication
     Route: 065

REACTIONS (18)
  - Euthanasia [Fatal]
  - On and off phenomenon [Not Recovered/Not Resolved]
  - Device issue [Recovered/Resolved]
  - Gait disturbance [Not Recovered/Not Resolved]
  - Dyskinesia [Not Recovered/Not Resolved]
  - Back pain [Not Recovered/Not Resolved]
  - Decreased appetite [Not Recovered/Not Resolved]
  - Dysarthria [Not Recovered/Not Resolved]
  - Muscle rigidity [Not Recovered/Not Resolved]
  - Choking [Not Recovered/Not Resolved]
  - Dry mouth [Not Recovered/Not Resolved]
  - Wheelchair user [Not Recovered/Not Resolved]
  - Aphasia [Not Recovered/Not Resolved]
  - Device occlusion [Recovered/Resolved]
  - Muscular weakness [Not Recovered/Not Resolved]
  - Therapeutic product effect incomplete [Not Recovered/Not Resolved]
  - Off label use [Not Recovered/Not Resolved]
  - Asthenia [Not Recovered/Not Resolved]

NARRATIVE: CASE EVENT DATE: 20240201
